FAERS Safety Report 22213779 (Version 1)
Quarter: 2023Q2

REPORT INFORMATION
  Report Type: Spontaneous
  Country: US (occurrence: US)
  Receive Date: 20230414
  Receipt Date: 20230414
  Transmission Date: 20230722
  Serious: No
  Sender: FDA-Public Use
  Company Number: US-ALLERGAN-2233409US

PATIENT
  Sex: Female
  Weight: 64.8 kg

DRUGS (3)
  1. LILETTA [Suspect]
     Active Substance: LEVONORGESTREL
     Indication: Contraception
     Dosage: 52 MG, SINGLE
     Route: 015
     Dates: start: 20220802
  2. CEPHALEXIN [Concomitant]
     Active Substance: CEPHALEXIN
     Indication: Product used for unknown indication
     Dosage: 1 CAPSULE BY MOUTH TWO TIMES/DAY FOR 7 DAYS
     Route: 048
  3. PARAGARD T 380A [Concomitant]
     Active Substance: COPPER
     Indication: Contraception

REACTIONS (2)
  - Uterine spasm [Unknown]
  - Procedural pain [Unknown]
